FAERS Safety Report 5497677-9 (Version None)
Quarter: 2007Q4

REPORT INFORMATION
  Report Type: 
  Country: None (occurrence: None)
  Receive Date: 20071025
  Receipt Date: 20070205
  Transmission Date: 20080405
  Serious: No
  Sender: FDA-Public Use
  Company Number: A0638349A

PATIENT
  Sex: Female

DRUGS (4)
  1. ADVAIR DISKUS 100/50 [Suspect]
     Indication: ASTHMA
     Route: 055
  2. UNKNOWN CANCER THERAPY DRUG [Concomitant]
  3. PREVACID [Concomitant]
  4. MORPHINE [Concomitant]

REACTIONS (9)
  - BONE PAIN [None]
  - HEADACHE [None]
  - HYPERKERATOSIS [None]
  - JOINT SWELLING [None]
  - NAUSEA [None]
  - NEURALGIA [None]
  - OEDEMA PERIPHERAL [None]
  - PAIN IN EXTREMITY [None]
  - PHARYNGITIS [None]
